FAERS Safety Report 5735570-4 (Version None)
Quarter: 2008Q2

REPORT INFORMATION
  Report Type: 
  Country: None (occurrence: None)
  Receive Date: 20080512
  Receipt Date: 20080124
  Transmission Date: 20081010
  Serious: Yes (Life-Threatening, Hospitalization)
  Sender: FDA-Public Use
  Company Number: US-BOEHRINGER INGELHEIM GMBH, GERMANY-2006-BP-07383BP

PATIENT
  Sex: Female
  Weight: 87 kg

DRUGS (46)
  1. MIRAPEX [Suspect]
     Indication: RESTLESS LEGS SYNDROME
     Route: 048
     Dates: start: 20020925, end: 20060201
  2. PLAVIX [Concomitant]
     Indication: CARDIAC DISORDER
  3. LASIX [Concomitant]
     Indication: CARDIAC DISORDER
  4. ZETIA [Concomitant]
     Indication: HYPERCHOLESTEROLAEMIA
  5. ASPIRIN [Concomitant]
     Indication: CARDIAC DISORDER
  6. IMDUR [Concomitant]
     Indication: CARDIAC DISORDER
  7. NEXIUM [Concomitant]
  8. TYLENOL [Concomitant]
  9. PROZAC [Concomitant]
     Dates: end: 20060301
  10. KLONOPIN [Concomitant]
     Dates: start: 20060401
  11. KDUR [Concomitant]
  12. TRIAVIL [Concomitant]
  13. TRICOR [Concomitant]
     Indication: CARDIAC DISORDER
  14. NITROGLYCERIN SPRAY [Concomitant]
     Indication: CARDIAC DISORDER
  15. VITAMIN CENTRUM SILVER [Concomitant]
     Indication: CARDIAC DISORDER
  16. ALBUTEROL [Concomitant]
     Indication: DEPRESSION
  17. LORAZEPAM [Concomitant]
     Indication: ANXIETY
  18. PREDNISONE TAB [Concomitant]
  19. TYLENOL W/ CODEINE NO. 3 [Concomitant]
  20. IBUPROFEN TABLETS [Concomitant]
  21. METHYLPHENDATE [Concomitant]
  22. KETEK [Concomitant]
  23. NORVASC [Concomitant]
  24. DEXTROAMPHETAMINE [Concomitant]
  25. ULTRACET [Concomitant]
  26. PAROXETINE HCL [Concomitant]
  27. ZITHROMAX [Concomitant]
  28. DARVOCET [Concomitant]
  29. COLYTE [Concomitant]
  30. PROVIGIL [Concomitant]
  31. CHLORHEXIDINE GLUCONATE [Concomitant]
  32. IPRATROPIUM BROMIDE [Concomitant]
  33. DUONEB [Concomitant]
  34. METHYLIN [Concomitant]
  35. TUSSIONEX [Concomitant]
  36. METHYLPREDNISOLONE [Concomitant]
  37. CALTRATE [Concomitant]
  38. FIBERCON [Concomitant]
  39. TEQUIN [Concomitant]
  40. ADVAIR DISKUS 100/50 [Concomitant]
  41. ATENOLOL [Concomitant]
  42. XANAX [Concomitant]
  43. PREMARIN [Concomitant]
  44. BEXTRA [Concomitant]
  45. DAYPRO [Concomitant]
  46. ASCORBIC ACID [Concomitant]

REACTIONS (15)
  - COMPULSIVE SHOPPING [None]
  - CORONARY ARTERY OCCLUSION [None]
  - EMOTIONAL DISTRESS [None]
  - HALLUCINATION [None]
  - HYPERSEXUALITY [None]
  - INJURY [None]
  - INTENTIONAL SELF-INJURY [None]
  - JOB DISSATISFACTION [None]
  - LIBIDO INCREASED [None]
  - NARCOLEPSY [None]
  - OBSESSIVE-COMPULSIVE DISORDER [None]
  - OVERDOSE [None]
  - PATHOLOGICAL GAMBLING [None]
  - PNEUMONIA [None]
  - SUICIDE ATTEMPT [None]
